FAERS Safety Report 21479809 (Version 1)
Quarter: 2022Q4

REPORT INFORMATION
  Report Type: Spontaneous
  Country: US (occurrence: None)
  Receive Date: 20221018
  Receipt Date: 20221018
  Transmission Date: 20230113
  Serious: No
  Sender: FDA-Public Use
  Company Number: None

PATIENT
  Age: 65 Year
  Sex: Female

DRUGS (1)
  1. LENALIDOMIDE [Suspect]
     Active Substance: LENALIDOMIDE
     Indication: Plasma cell myeloma
     Dosage: 10MG QOD ORAL
     Route: 048
     Dates: start: 20160819

REACTIONS (3)
  - Product substitution issue [None]
  - Gastrooesophageal reflux disease [None]
  - Diverticulitis [None]

NARRATIVE: CASE EVENT DATE: 20221007
